FAERS Safety Report 21528552 (Version 2)
Quarter: 2022Q4

REPORT INFORMATION
  Report Type: Spontaneous
  Country: JP (occurrence: JP)
  Receive Date: 20221031
  Receipt Date: 20221122
  Transmission Date: 20230113
  Serious: Yes (Hospitalization)
  Sender: FDA-Public Use
  Company Number: JP-GLAXOSMITHKLINE-JP2022JPN153347

PATIENT

DRUGS (2)
  1. VALTREX [Suspect]
     Active Substance: VALACYCLOVIR HYDROCHLORIDE
     Indication: Herpes zoster
     Dosage: 3000 MG/DAY
     Route: 048
  2. ZOVIRAX [Suspect]
     Active Substance: ACYCLOVIR
     Indication: Herpes zoster
     Dosage: 5 MG/KG, BID

REACTIONS (6)
  - Performance status decreased [Recovering/Resolving]
  - Feeding disorder [Unknown]
  - Renal disorder [Recovering/Resolving]
  - Episcleritis [Unknown]
  - Hyperaemia [Recovering/Resolving]
  - Overdose [Unknown]
